FAERS Safety Report 7864304-2 (Version None)
Quarter: 2011Q4

REPORT INFORMATION
  Report Type: 
  Country: None (occurrence: None)
  Receive Date: 20111028
  Receipt Date: 20110601
  Transmission Date: 20120403
  Serious: No
  Sender: FDA-Public Use
  Company Number: US-GLAXOSMITHKLINE-A0929896A

PATIENT
  Age: 53 Year
  Sex: Male

DRUGS (3)
  1. SEREVENT [Suspect]
     Indication: ASTHMA
     Dosage: 2PUFF TWICE PER DAY
     Route: 055
  2. ALLERGY MEDICATION [Concomitant]
  3. ALBUTEROL [Concomitant]

REACTIONS (3)
  - PRODUCT QUALITY ISSUE [None]
  - CHEST DISCOMFORT [None]
  - DRUG INEFFECTIVE [None]
